FAERS Safety Report 18810757 (Version 2)
Quarter: 2021Q1

REPORT INFORMATION
  Report Type: Spontaneous
  Country: US (occurrence: US)
  Receive Date: 20210129
  Receipt Date: 20210305
  Transmission Date: 20210419
  Serious: Yes (Death)
  Sender: FDA-Public Use
  Company Number: US-CELGENEUS-USA-20210107214

PATIENT
  Age: 71 Year
  Sex: Male

DRUGS (1)
  1. INREBIC [Suspect]
     Active Substance: FEDRATINIB HYDROCHLORIDE
     Indication: POLYCYTHAEMIA VERA
     Dosage: 100 MILLIGRAM
     Route: 048
     Dates: start: 20201211, end: 20210115

REACTIONS (1)
  - Aortic thrombosis [Fatal]

NARRATIVE: CASE EVENT DATE: 20210111
